FAERS Safety Report 9841271 (Version 1)
Quarter: 2014Q1

REPORT INFORMATION
  Report Type: Spontaneous
  Country: US (occurrence: US)
  Receive Date: 20140124
  Receipt Date: 20140124
  Transmission Date: 20141002
  Serious: Yes (Death, Hospitalization, Other)
  Sender: FDA-Public Use
  Company Number: US-PURDUE-USA-2014-0110649

PATIENT
  Age: 55 Year
  Sex: Male
  Weight: 68.27 kg

DRUGS (51)
  1. MORPHINE SULFATE (SIMILAR TO NDA 19-516) [Suspect]
     Indication: PRODUCT USED FOR UNKNOWN INDICATION
     Dosage: 30 MG, Q5H
     Dates: start: 20130709
  2. MORPHINE SULFATE (SIMILAR TO NDA 19-516) [Suspect]
     Dosage: 30 MG, QID
     Dates: start: 20130125
  3. MORPHINE SULFATE (SIMILAR TO NDA 19-516) [Suspect]
     Dosage: 30 MG, Q8H
     Dates: start: 20130412
  4. MORPHINE SULFATE (SIMILAR TO NDA 19-516) [Suspect]
     Dosage: 30 MG, QID
     Dates: start: 20130717
  5. MORPHINE SULFATE (SIMILAR TO NDA 19-516) [Suspect]
     Dosage: 30 MG, QID
     Dates: start: 20130305
  6. MORPHINE SULFATE (SIMILAR TO NDA 19-516) [Suspect]
     Dosage: 30 MG, Q8H
     Dates: start: 20130703
  7. MORPHINE SULFATE (SIMILAR TO NDA 19-516) [Suspect]
     Dosage: 30 MG, QID
     Dates: start: 20130302
  8. MORPHINE SULFATE (SIMILAR TO NDA 19-516) [Suspect]
     Dosage: 30 MG, Q8H
     Dates: start: 20130109
  9. VALIUM                             /00017001/ [Concomitant]
     Indication: PRODUCT USED FOR UNKNOWN INDICATION
     Dosage: 10 MG, Q6H
     Dates: start: 20130610
  10. VALIUM                             /00017001/ [Concomitant]
     Dosage: 10 MG, QD PRN
     Dates: start: 20130625
  11. VALIUM                             /00017001/ [Concomitant]
     Dosage: 10 MG, Q6H
     Dates: start: 20130222
  12. VALIUM                             /00017001/ [Concomitant]
     Dosage: 10 MG, TID
     Dates: start: 20130703
  13. VALIUM                             /00017001/ [Concomitant]
     Dosage: 10 MG, QID
     Dates: start: 20130401
  14. VALIUM                             /00017001/ [Concomitant]
     Dosage: 10 MG, Q6H
     Dates: start: 20130320
  15. VALIUM                             /00017001/ [Concomitant]
     Dosage: 10 MG, QD PRN
     Dates: start: 20130722
  16. VALIUM                             /00017001/ [Concomitant]
     Dosage: 10 MG, Q6H
     Dates: start: 20130515
  17. VALIUM                             /00017001/ [Concomitant]
     Dosage: 10 MG, TID
     Dates: start: 20130109
  18. VALIUM                             /00017001/ [Concomitant]
     Dosage: 10 MG, QID
     Dates: start: 20130125
  19. VALIUM                             /00017001/ [Concomitant]
     Dosage: 10 MG, Q6H
     Dates: start: 20130417
  20. VALIUM                             /00017001/ [Concomitant]
     Dosage: 10 MG, TID
     Dates: start: 20130302
  21. VALIUM                             /00017001/ [Concomitant]
     Dosage: 10 MG, QID
     Dates: start: 20130412
  22. CLONIDINE [Concomitant]
     Indication: PRODUCT USED FOR UNKNOWN INDICATION
     Dosage: 0.4 MG, BID
     Dates: start: 20130610
  23. CLONIDINE [Concomitant]
     Dosage: 0.2 MG, QID
     Dates: start: 20120808
  24. CLONIDINE [Concomitant]
     Dosage: 0.2 MG, QID
     Dates: start: 20130724
  25. CLONIDINE [Concomitant]
     Dosage: 0.4 MG, BID
     Dates: start: 20130131
  26. CLONIDINE [Concomitant]
     Dosage: 0.4 MG, BID
     Dates: start: 20130318
  27. CLONIDINE [Concomitant]
     Dosage: 0.4 MG, BID
     Dates: start: 20130717
  28. CLONIDINE [Concomitant]
     Dosage: 0.4 MG, BID
     Dates: start: 20130708
  29. CLONIDINE [Concomitant]
     Dosage: 0.4 MG, BID
     Dates: start: 20130726
  30. CLONIDINE [Concomitant]
     Dosage: 0.4 MG, BID
     Dates: start: 20130621
  31. CLONIDINE [Concomitant]
     Dosage: 0.4 MG, BID
     Dates: start: 20130210
  32. CLONIDINE [Concomitant]
     Dosage: 0.2 MG, QID
     Dates: start: 20130724
  33. CLONIDINE [Concomitant]
     Dosage: 0.4 MG, BID
     Dates: start: 20130309
  34. CLONIDINE [Concomitant]
     Dosage: 0.2 MG, Q8H
     Dates: start: 20130703
  35. CLONIDINE [Concomitant]
     Dosage: 0.2 MG, QID
     Dates: start: 20130503
  36. CLONIDINE [Concomitant]
     Dosage: 0.2 MG, QID
     Dates: start: 20130302
  37. CLONIDINE [Concomitant]
     Dosage: 0.2 MG, QID
     Dates: start: 20130403
  38. CELEXA                             /00582602/ [Concomitant]
     Indication: PRODUCT USED FOR UNKNOWN INDICATION
     Dosage: 40 MG, QD PRN
     Dates: start: 20130107
  39. PROCHLORPERAZINE [Concomitant]
     Indication: PRODUCT USED FOR UNKNOWN INDICATION
     Dosage: 10 MG, QD PRN
     Dates: start: 20130617
  40. PROCHLORPERAZINE [Concomitant]
     Dosage: 10 MG, QD PRN
     Dates: end: 20130731
  41. PROPECIA [Concomitant]
     Indication: PRODUCT USED FOR UNKNOWN INDICATION
     Dosage: 1 MG, QD PRN
     Dates: start: 20130218
  42. PROPECIA [Concomitant]
     Dosage: 1 MG, QD PRN
     Dates: start: 20130322
  43. MINOXIDIL [Concomitant]
     Indication: PRODUCT USED FOR UNKNOWN INDICATION
  44. BISACODYL [Concomitant]
     Indication: PRODUCT USED FOR UNKNOWN INDICATION
     Dosage: UNK
     Dates: start: 20130709
  45. LEVITRA [Concomitant]
     Indication: PRODUCT USED FOR UNKNOWN INDICATION
     Dosage: 10 MG, UD
     Dates: start: 20120709
  46. LEXAPRO [Concomitant]
     Indication: PRODUCT USED FOR UNKNOWN INDICATION
     Dosage: 20 MG, QD PRN
     Dates: start: 20130118
  47. LEXAPRO [Concomitant]
     Dosage: 20 MG, QD PRN
     Dates: start: 20130510
  48. LEXAPRO [Concomitant]
     Dosage: 20 MG, QD PRN
     Dates: start: 20130818
  49. LEXAPRO [Concomitant]
     Dosage: 20 MG, QD PRN
     Dates: start: 20130228
  50. NORCO [Concomitant]
     Indication: PRODUCT USED FOR UNKNOWN INDICATION
     Dosage: 1 TABLET, TID
     Dates: start: 20130625
  51. SIMVASTATIN [Concomitant]
     Indication: PRODUCT USED FOR UNKNOWN INDICATION
     Dosage: 20 MG, HS

REACTIONS (7)
  - Cardiac hypertrophy [Fatal]
  - Drug detoxification [Unknown]
  - Blood sodium decreased [Unknown]
  - Blood potassium decreased [Unknown]
  - Back pain [Unknown]
  - Bronchitis [Unknown]
  - Chest pain [Unknown]
